FAERS Safety Report 6125380-0 (Version None)
Quarter: 2009Q1

REPORT INFORMATION
  Report Type: 
  Country: None (occurrence: None)
  Receive Date: 20090319
  Receipt Date: 20090319
  Transmission Date: 20090719
  Serious: Yes (Hospitalization)
  Sender: FDA-Public Use
  Company Number: None

PATIENT
  Age: 94 Year
  Sex: Female

DRUGS (1)
  1. OXYBUTYNIN CHLORIDE [Suspect]
     Indication: POLLAKIURIA
     Dates: start: 20090210

REACTIONS (2)
  - HYPERTENSION [None]
  - MENTAL STATUS CHANGES [None]
